FAERS Safety Report 19841219 (Version 2)
Quarter: 2021Q4

REPORT INFORMATION
  Report Type: Spontaneous
  Country: US (occurrence: US)
  Receive Date: 20210916
  Receipt Date: 20211210
  Transmission Date: 20220303
  Serious: Yes (Hospitalization)
  Sender: FDA-Public Use
  Company Number: US-PFIZER INC-202101192004

PATIENT
  Age: 72 Year
  Sex: Female

DRUGS (1)
  1. IBRANCE [Suspect]
     Active Substance: PALBOCICLIB
     Indication: Breast cancer female
     Dosage: 125 MG, CYCLIC (TAKE 1 TAB QD FOR 21 DAYS WITH 7 DAYS OFF)
     Dates: start: 20200821

REACTIONS (2)
  - Pneumonia [Unknown]
  - Nasopharyngitis [Recovered/Resolved]
